FAERS Safety Report 7754141-1 (Version None)
Quarter: 2011Q3

REPORT INFORMATION
  Report Type: 
  Country: None (occurrence: None)
  Receive Date: 20110915
  Receipt Date: 20110907
  Transmission Date: 20111222
  Serious: Yes (Other)
  Sender: FDA-Public Use
  Company Number: US-BAXTER-2011BH028953

PATIENT

DRUGS (4)
  1. HEPARIN SODIUM INJECTION [Suspect]
     Indication: OFF LABEL USE
     Dosage: DOSE UNIT:UNITS PER KILOGRAM
     Route: 040
  2. HEPARIN SODIUM 5,000 UNITS IN DEXTROSE 5% [Suspect]
     Indication: THROMBOSIS PROPHYLAXIS
     Dosage: DOSE UNIT:UNITS PER KILOGRAM
     Route: 040
  3. HEPARIN SODIUM 5,000 UNITS IN DEXTROSE 5% [Suspect]
     Indication: OFF LABEL USE
     Dosage: DOSE UNIT:UNITS PER KILOGRAM
     Route: 040
  4. HEPARIN SODIUM INJECTION [Suspect]
     Indication: THROMBOSIS PROPHYLAXIS
     Dosage: DOSE UNIT:UNITS PER KILOGRAM
     Route: 040

REACTIONS (1)
  - HAEMORRHAGE [None]
